FAERS Safety Report 19424986 (Version 1)
Quarter: 2021Q2

REPORT INFORMATION
  Report Type: Spontaneous
  Country: US (occurrence: US)
  Receive Date: 20210617
  Receipt Date: 20210617
  Transmission Date: 20210717
  Serious: Yes (Hospitalization, Other)
  Sender: FDA-Public Use
  Company Number: US-BRISTOL-MYERS SQUIBB COMPANY-BMS-2021-057646

PATIENT
  Age: 99 Year
  Sex: Female

DRUGS (1)
  1. ELIQUIS [Suspect]
     Active Substance: APIXABAN
     Indication: PERIPHERAL SWELLING
     Dosage: UNK
     Route: 048

REACTIONS (6)
  - Fall [Unknown]
  - Dysphagia [Unknown]
  - Spinal fracture [Unknown]
  - Head injury [Unknown]
  - Treatment noncompliance [Unknown]
  - Dementia [Unknown]

NARRATIVE: CASE EVENT DATE: 20210604
